FAERS Safety Report 6274259-2 (Version None)
Quarter: 2009Q3

REPORT INFORMATION
  Report Type: 
  Country: None (occurrence: None)
  Receive Date: 20090720
  Receipt Date: 20090708
  Transmission Date: 20100115
  Serious: Yes (Disabling)
  Sender: FDA-Public Use
  Company Number: GB-JNJFOC-20090705904

PATIENT
  Age: 3 Decade
  Sex: Male

DRUGS (2)
  1. TRAMADOL HCL [Suspect]
     Indication: PAIN IN EXTREMITY
     Route: 048
  2. PARACETAMOL [Concomitant]
     Indication: PAIN IN EXTREMITY
     Route: 065

REACTIONS (1)
  - HICCUPS [None]
